FAERS Safety Report 14588003 (Version 1)
Quarter: 2018Q1

REPORT INFORMATION
  Report Type: Spontaneous
  Country: US (occurrence: US)
  Receive Date: 20180301
  Receipt Date: 20180301
  Transmission Date: 20180509
  Serious: Yes (Other)
  Sender: FDA-Public Use
  Company Number: US-SA-2018SA057270

PATIENT
  Age: 74 Year
  Sex: Female

DRUGS (4)
  1. TOUJEO [Suspect]
     Active Substance: INSULIN GLARGINE
     Indication: TYPE 2 DIABETES MELLITUS
     Route: 051
  2. TOUJEO [Suspect]
     Active Substance: INSULIN GLARGINE
     Indication: TYPE 2 DIABETES MELLITUS
     Dosage: DOSE:18 UNIT(S)
     Route: 051
     Dates: start: 20180222
  3. SOLOSTAR [Suspect]
     Active Substance: DEVICE
     Indication: TYPE 2 DIABETES MELLITUS
     Dates: start: 20180222
  4. SOLOSTAR [Suspect]
     Active Substance: DEVICE
     Indication: TYPE 2 DIABETES MELLITUS

REACTIONS (13)
  - Impaired work ability [Unknown]
  - Intentional product misuse [Unknown]
  - Dizziness [Unknown]
  - Eye disorder [Unknown]
  - Malaise [Unknown]
  - Constipation [Unknown]
  - Blood glucose increased [Unknown]
  - Feeling cold [Unknown]
  - Loss of consciousness [Unknown]
  - Drug ineffective [Unknown]
  - Cardiac disorder [Unknown]
  - Fatigue [Unknown]
  - Pain [Unknown]
